FAERS Safety Report 13804486 (Version 1)
Quarter: 2017Q3

REPORT INFORMATION
  Report Type: Spontaneous
  Country: US (occurrence: US)
  Receive Date: 20170728
  Receipt Date: 20170728
  Transmission Date: 20171127
  Serious: No
  Sender: FDA-Public Use
  Company Number: US-ABBVIE-17P-163-1925960-00

PATIENT
  Sex: Female

DRUGS (2)
  1. ARMOUR THYROID [Concomitant]
     Active Substance: THYROID, PORCINE
     Indication: HYPERTHYROIDISM
  2. SYNTHROID [Suspect]
     Active Substance: LEVOTHYROXINE SODIUM
     Indication: HYPERTHYROIDISM
     Route: 048

REACTIONS (7)
  - Dyspnoea [Unknown]
  - Abdominal distension [Unknown]
  - Somnolence [Unknown]
  - Drug ineffective [Unknown]
  - Feeling drunk [Unknown]
  - Feeling cold [Unknown]
  - Weight increased [Unknown]
